FAERS Safety Report 6672986-6 (Version None)
Quarter: 2010Q2

REPORT INFORMATION
  Report Type: 
  Country: None (occurrence: None)
  Receive Date: 20100408
  Receipt Date: 20100329
  Transmission Date: 20101027
  Serious: Yes (Death)
  Sender: FDA-Public Use
  Company Number: B0497519B

PATIENT

DRUGS (1)
  1. MALARONE [Suspect]
     Indication: PROPHYLAXIS

REACTIONS (2)
  - DRUG EXPOSURE DURING PREGNANCY [None]
  - FOETAL MALFORMATION [None]
